FAERS Safety Report 15033633 (Version 1)
Quarter: 2018Q2

REPORT INFORMATION
  Report Type: Spontaneous
  Country: US (occurrence: US)
  Receive Date: 20180619
  Receipt Date: 20180619
  Transmission Date: 20180711
  Serious: No
  Sender: FDA-Public Use
  Company Number: US-AMGEN-USASP2011024125

PATIENT
  Sex: Female

DRUGS (4)
  1. CYTOXAN [Concomitant]
     Active Substance: CYCLOPHOSPHAMIDE
  2. NEUPOGEN [Suspect]
     Active Substance: FILGRASTIM
     Indication: CHEMOTHERAPY
  3. HERCEPTIN [Concomitant]
     Active Substance: TRASTUZUMAB
  4. TAXOTERE [Concomitant]
     Active Substance: DOCETAXEL

REACTIONS (2)
  - Surgery [Unknown]
  - Bone pain [Unknown]
